FAERS Safety Report 4354465-4 (Version None)
Quarter: 2004Q2

REPORT INFORMATION
  Report Type: 
  Country: None (occurrence: None)
  Receive Date: 20040503
  Receipt Date: 20040423
  Transmission Date: 20050107
  Serious: Yes (Other)
  Sender: FDA-Public Use
  Company Number: 2004-04-1036

PATIENT
  Age: 63 Year
  Sex: Male

DRUGS (5)
  1. PEG-INTRON [Suspect]
     Indication: HEPATITIS C
     Dosage: 150 MCG SUBCUTANEOUS
     Route: 058
     Dates: start: 20040220
  2. RIBAVIRIN [Suspect]
     Indication: HEPATITIS C
     Dosage: 1200 MG ORAL
     Route: 048
     Dates: start: 20040220
  3. METHADONE HCL [Concomitant]
  4. ELAVIL [Concomitant]
  5. MULTI-VITAMINS [Concomitant]

REACTIONS (7)
  - DISORIENTATION [None]
  - HAEMOPTYSIS [None]
  - LARYNGITIS [None]
  - NASOPHARYNGEAL DISORDER [None]
  - PALLOR [None]
  - PRODUCTIVE COUGH [None]
  - PYREXIA [None]
